FAERS Safety Report 4368790-4 (Version None)
Quarter: 2004Q2

REPORT INFORMATION
  Report Type: 
  Country: None (occurrence: None)
  Receive Date: 20040528
  Receipt Date: 20040517
  Transmission Date: 20050107
  Serious: Yes (Other)
  Sender: FDA-Public Use
  Company Number: 200417900BWH

PATIENT
  Age: 68 Year
  Sex: Male
  Weight: 80.7403 kg

DRUGS (12)
  1. CIPRO [Suspect]
     Indication: PROSTATE INFECTION
     Dosage: 1000 MG, TOTAL DAILY, ORAL
     Route: 048
     Dates: start: 20030201, end: 20030401
  2. BACTRIM DS [Concomitant]
  3. ENALAPRIL [Concomitant]
  4. MULTI-VITAMIN [Concomitant]
  5. CALCIUM [Concomitant]
  6. FLAXSEED OIL [Concomitant]
  7. OMEGA 3 [Concomitant]
  8. SELENIUM TRACE METAL ADDITIVE [Concomitant]
  9. VITAMIN E [Concomitant]
  10. GINGO BILOBA [Concomitant]
  11. ASPIRIN [Concomitant]
  12. ACIDOPHILUS [Concomitant]

REACTIONS (6)
  - ARTHRALGIA [None]
  - BONE PAIN [None]
  - BURSITIS [None]
  - JOINT SWELLING [None]
  - SWELLING [None]
  - TENDON DISORDER [None]
